FAERS Safety Report 8738914 (Version 3)
Quarter: 2013Q3

REPORT INFORMATION
  Report Type: Report from Study
  Country: JP (occurrence: JP)
  Receive Date: 20120823
  Receipt Date: 20130730
  Transmission Date: 20140515
  Serious: Yes (Other)
  Sender: FDA-Public Use
  Company Number: JP-VERTEX PHARMACEUTICAL INC.-2012-019717

PATIENT
  Age: 59 Year
  Sex: Male

DRUGS (7)
  1. VX-950 (TELAPREVIR) [Suspect]
     Indication: CHRONIC HEPATITIS C
     Dosage: 2250 MG, QD
     Route: 048
     Dates: start: 20120613, end: 20120616
  2. REBETOL [Suspect]
     Indication: CHRONIC HEPATITIS C
     Dosage: 600 MG, QD
     Route: 048
     Dates: start: 20120613, end: 20120616
  3. PEGINTRON [Suspect]
     Indication: CHRONIC HEPATITIS C
     Dosage: 1.5 ?G/KG, QW
     Route: 058
     Dates: start: 20120613, end: 20120613
  4. URSODEOXYCHOLIC ACID [Concomitant]
     Dosage: 600 MG, QD
     Route: 048
  5. GASTER D [Concomitant]
     Dosage: 40 MG, QD
     Route: 048
  6. SELBEX [Concomitant]
     Dosage: 150 MG, QD
     Route: 048
  7. THYRADIN S [Concomitant]
     Dosage: 25 ?G,QD
     Route: 048

REACTIONS (3)
  - Renal disorder [Recovered/Resolved]
  - White blood cell count decreased [Recovered/Resolved]
  - Neutrophil count decreased [Recovered/Resolved]
